FAERS Safety Report 23065537 (Version 3)
Quarter: 2024Q1

REPORT INFORMATION
  Report Type: Spontaneous
  Country: DE (occurrence: DE)
  Receive Date: 20231013
  Receipt Date: 20240109
  Transmission Date: 20240410
  Serious: Yes (Other)
  Sender: FDA-Public Use
  Company Number: DE-002147023-NVSC2023DE216623

PATIENT
  Age: 52 Year
  Sex: Female
  Weight: 60 kg

DRUGS (1)
  1. AIMOVIG [Suspect]
     Active Substance: ERENUMAB-AOOE
     Indication: Migraine prophylaxis
     Dosage: 70 MILLIGRAM, QMO
     Route: 058
     Dates: start: 20190822, end: 20220601

REACTIONS (5)
  - Dental fistula [Unknown]
  - Pulpitis dental [Recovered/Resolved with Sequelae]
  - Pulpitis dental [Recovered/Resolved with Sequelae]
  - Noninfective gingivitis [Unknown]
  - Face injury [Recovered/Resolved with Sequelae]
